FAERS Safety Report 8977492 (Version 2)
Quarter: 2012Q4

REPORT INFORMATION
  Report Type: 
  Country: CA (occurrence: US)
  Receive Date: 20121219
  Receipt Date: 20121226
  Transmission Date: 20130627
  Serious: Yes (Death, Other)
  Sender: FDA-Public Use
  Company Number: CA-009507513-1212USA007460

PATIENT

DRUGS (1)
  1. TEMOZOLOMIDE [Suspect]
     Route: 048

REACTIONS (1)
  - Medication error [Fatal]
